FAERS Safety Report 22205289 (Version 1)
Quarter: 2023Q2

REPORT INFORMATION
  Report Type: Spontaneous
  Country: US (occurrence: US)
  Receive Date: 20230413
  Receipt Date: 20230413
  Transmission Date: 20230721
  Serious: Yes (Hospitalization)
  Sender: FDA-Public Use
  Company Number: US-SA-SAC20230411001211

PATIENT
  Sex: Female

DRUGS (4)
  1. DUPIXENT [Suspect]
     Active Substance: DUPILUMAB
     Indication: Dermatitis atopic
     Dosage: 300 MG, QOW
     Route: 058
     Dates: start: 202301
  2. AMOXICILLIN [Suspect]
     Active Substance: AMOXICILLIN
  3. CEPHALEXIN [Suspect]
     Active Substance: CEPHALEXIN
  4. AUGMENTIN [Suspect]
     Active Substance: AMOXICILLIN\CLAVULANATE POTASSIUM

REACTIONS (4)
  - Cystitis [Recovered/Resolved]
  - Haematological infection [Recovered/Resolved]
  - Drug hypersensitivity [Unknown]
  - Rash [Unknown]
